FAERS Safety Report 7263678-3 (Version None)
Quarter: 2011Q1

REPORT INFORMATION
  Report Type: 
  Country: None (occurrence: None)
  Receive Date: 20110130
  Receipt Date: 20101216
  Transmission Date: 20110831
  Serious: No
  Sender: FDA-Public Use
  Company Number: US-ABBOTT-10P-163-0692072-00

PATIENT
  Age: 45 Year
  Sex: Female

DRUGS (5)
  1. WELCOLOL [Concomitant]
     Indication: DIARRHOEA
  2. NEXIUM [Concomitant]
     Indication: GASTROOESOPHAGEAL REFLUX DISEASE
  3. LISINOPRIL [Concomitant]
     Indication: BLOOD PRESSURE
  4. HUMIRA [Suspect]
     Indication: CROHN'S DISEASE
     Dates: start: 20100917
  5. LIBRAX [Concomitant]
     Indication: MUSCLE SPASMS

REACTIONS (1)
  - INJECTION SITE PAIN [None]
